FAERS Safety Report 18435406 (Version 1)
Quarter: 2020Q4

REPORT INFORMATION
  Report Type: Spontaneous
  Country: IL (occurrence: IL)
  Receive Date: 20201028
  Receipt Date: 20201028
  Transmission Date: 20210114
  Serious: Yes (Other)
  Sender: FDA-Public Use
  Company Number: IL-TEVA-2020-IL-1835857

PATIENT
  Age: 60 Year
  Sex: Female

DRUGS (4)
  1. NEXIUM [Concomitant]
     Active Substance: ESOMEPRAZOLE MAGNESIUM
  2. LIVIAL HORMONE [Concomitant]
  3. AJOVY [Suspect]
     Active Substance: FREMANEZUMAB-VFRM
     Route: 065
  4. CARDILOC [Concomitant]
     Active Substance: BISOPROLOL FUMARATE

REACTIONS (12)
  - Injection site bruising [Unknown]
  - Injection site reaction [Recovered/Resolved]
  - Fatigue [Not Recovered/Not Resolved]
  - Injection site erythema [Recovered/Resolved]
  - Injection site swelling [Unknown]
  - Arthralgia [Not Recovered/Not Resolved]
  - COVID-19 [Recovered/Resolved]
  - Injection site pain [Recovered/Resolved]
  - Injection site pruritus [Recovered/Resolved]
  - Migraine [Recovered/Resolved]
  - Abdominal pain [Unknown]
  - Rash [Recovered/Resolved]
